FAERS Safety Report 5107562-X (Version None)
Quarter: 2006Q3

REPORT INFORMATION
  Report Type: 
  Country: None (occurrence: None)
  Receive Date: 20060913
  Receipt Date: 20060913
  Transmission Date: 20061208
  Serious: Yes (Life-Threatening)
  Sender: FDA-Public Use
  Company Number: None

PATIENT
  Sex: Male
  Weight: 4.1 kg

DRUGS (1)
  1. PULMOZYME [Suspect]
     Indication: RESPIRATORY FAILURE
     Dosage: 2.5 MG 2 TIMES DAILY INHAL
     Route: 055
     Dates: start: 20051229, end: 20060108

REACTIONS (5)
  - BRADYCARDIA [None]
  - BRONCHOSPASM [None]
  - CARDIAC ARREST [None]
  - OXYGEN SATURATION DECREASED [None]
  - SIMILAR REACTION ON PREVIOUS EXPOSURE TO DRUG [None]
